FAERS Safety Report 20046972 (Version 2)
Quarter: 2021Q4

REPORT INFORMATION
  Report Type: Report from Study
  Country: US (occurrence: US)
  Receive Date: 20211109
  Receipt Date: 20211201
  Transmission Date: 20220303
  Serious: Yes (Hospitalization)
  Sender: FDA-Public Use
  Company Number: US-CLOVIS ONCOLOGY-CLO-2021-001646

PATIENT
  Sex: Female

DRUGS (1)
  1. RUBRACA [Suspect]
     Active Substance: RUCAPARIB CAMSYLATE
     Indication: Ovarian cancer
     Dosage: 600 MILLIGRAM, BID
     Route: 048
     Dates: start: 20180921

REACTIONS (6)
  - Cough [Not Recovered/Not Resolved]
  - Adverse event [Unknown]
  - Peripheral swelling [Unknown]
  - Pain in extremity [Unknown]
  - Left ventricular dysfunction [Unknown]
  - Constipation [Unknown]
